FAERS Safety Report 7265263-6 (Version None)
Quarter: 2011Q1

REPORT INFORMATION
  Report Type: 
  Country: None (occurrence: None)
  Receive Date: 20110131
  Receipt Date: 20110125
  Transmission Date: 20110831
  Serious: Yes (Hospitalization, Other)
  Sender: FDA-Public Use
  Company Number: US-PFIZER INC-2010078906

PATIENT
  Sex: Female

DRUGS (3)
  1. CHANTIX [Suspect]
     Indication: SMOKING CESSATION THERAPY
     Dosage: UNK
     Dates: start: 20080101, end: 20080101
  2. LYRICA [Concomitant]
     Indication: COMPLEX REGIONAL PAIN SYNDROME
     Dosage: UNK
     Dates: start: 20070101
  3. LYRICA [Concomitant]
     Indication: PAIN

REACTIONS (5)
  - LIVER INJURY [None]
  - SUICIDE ATTEMPT [None]
  - MENTAL DISORDER [None]
  - DEPRESSION [None]
  - INTENTIONAL OVERDOSE [None]
